FAERS Safety Report 8227527-9 (Version None)
Quarter: 2012Q1

REPORT INFORMATION
  Report Type: 
  Country: None (occurrence: None)
  Receive Date: 20120322
  Receipt Date: 20120309
  Transmission Date: 20120608
  Serious: Yes (Death)
  Sender: FDA-Public Use
  Company Number: TR-ASTELLAS-2012US002959

PATIENT
  Age: 50 Year
  Sex: Male

DRUGS (3)
  1. AMPHOTERICIN B [Concomitant]
     Indication: PRODUCT USED FOR UNKNOWN INDICATION
     Dosage: 0.8 MG/KG, UNKNOWN/D
     Route: 065
  2. AMBISOME [Suspect]
     Indication: BLASTOMYCOSIS
     Dosage: 5 MG/KG, UNKNOWN/D
     Route: 065
  3. CEFEPIME [Concomitant]
     Indication: PRODUCT USED FOR UNKNOWN INDICATION
     Dosage: UNK
     Route: 065

REACTIONS (1)
  - DRUG INEFFECTIVE [None]
